FAERS Safety Report 8243687 (Version 7)
Quarter: 2013Q4

REPORT INFORMATION
  Report Type: Spontaneous
  Country: US (occurrence: US)
  Receive Date: 20111114
  Receipt Date: 20131209
  Transmission Date: 20140711
  Serious: Yes (Hospitalization)
  Sender: FDA-Public Use
  Company Number: US-GLAXOSMITHKLINE-A0801981A

PATIENT
  Age: 70 Year
  Sex: Male
  Weight: 91.8 kg

DRUGS (3)
  1. AVANDIA [Suspect]
     Indication: DIABETES MELLITUS
     Dosage: 8MG PER DAY
     Route: 048
     Dates: start: 2000, end: 200705
  2. ZOCOR [Concomitant]
  3. METFORMIN [Concomitant]

REACTIONS (8)
  - Carotid artery disease [Unknown]
  - Thrombosis [Unknown]
  - Coronary artery disease [Unknown]
  - Hypertension [Unknown]
  - Peripheral vascular disorder [Unknown]
  - Atrial fibrillation [Unknown]
  - Acute coronary syndrome [Unknown]
  - Acute myocardial infarction [Unknown]
